FAERS Safety Report 4633739-3 (Version None)
Quarter: 2005Q2

REPORT INFORMATION
  Report Type: 
  Country: None (occurrence: None)
  Receive Date: 20050331
  Receipt Date: 20050105
  Transmission Date: 20051028
  Serious: Yes (Other)
  Sender: FDA-Public Use
  Company Number: 200510065BCC

PATIENT
  Age: 77 Year
  Sex: Female
  Weight: 88.4514 kg

DRUGS (18)
  1. ALEVE (CAPLET) [Suspect]
     Indication: ARTHRITIS
     Dosage: 440 MG, TOTAL DAILY, ORAL
     Route: 048
     Dates: start: 20050105
  2. ATROVENT [Concomitant]
  3. ADVAIR DISKUS 100/50 [Concomitant]
  4. PREDNISONE TAB [Concomitant]
  5. HYDROCODONE BITARTRATE [Concomitant]
  6. FOSAMAX [Concomitant]
  7. SAXANR [Concomitant]
  8. SINGULAIR [Concomitant]
  9. POTASSIUM CHLORIDE [Concomitant]
  10. ASPIRIN [Concomitant]
  11. CLARINEX /USA/ [Concomitant]
  12. LASIX [Concomitant]
  13. DYNACIRC [Concomitant]
  14. PACERONE [Concomitant]
  15. MUCO-FEN-DM [Concomitant]
  16. LIROXICAM [Concomitant]
  17. PRIMIDONE [Concomitant]
  18. PREVACID [Concomitant]

REACTIONS (5)
  - BLOOD PRESSURE DECREASED [None]
  - HYPERSENSITIVITY [None]
  - PRURITUS [None]
  - RASH [None]
  - SKIN BURNING SENSATION [None]
